FAERS Safety Report 24932716 (Version 1)
Quarter: 2025Q1

REPORT INFORMATION
  Report Type: Report from Study
  Country: US (occurrence: US)
  Receive Date: 20250205
  Receipt Date: 20250205
  Transmission Date: 20250408
  Serious: No
  Sender: EXELIXIS
  Company Number: US-EXELIXIS-EXL-2024-000568

PATIENT
  Age: 79 Year
  Sex: Male

DRUGS (1)
  1. CABOMETYX [Suspect]
     Active Substance: CABOZANTINIB S-MALATE
     Indication: Hepatocellular carcinoma
     Dosage: 60 MG, QD
     Route: 048
     Dates: start: 202409

REACTIONS (5)
  - Adverse drug reaction [Unknown]
  - Pollakiuria [Unknown]
  - Nasal congestion [Unknown]
  - Neck pain [Unknown]
  - Cough [Unknown]

NARRATIVE: CASE EVENT DATE: 20240901
